FAERS Safety Report 5953637-2 (Version None)
Quarter: 2008Q4

REPORT INFORMATION
  Report Type: 
  Country: None (occurrence: None)
  Receive Date: 20081114
  Receipt Date: 20081031
  Transmission Date: 20090506
  Serious: Yes (Other)
  Sender: FDA-Public Use
  Company Number: B0545179A

PATIENT
  Sex: Male

DRUGS (6)
  1. ZIAGEN [Suspect]
     Indication: HIV INFECTION
     Route: 065
     Dates: start: 20050723, end: 20060329
  2. EPIVIR [Suspect]
     Indication: HIV INFECTION
     Route: 065
     Dates: start: 20050723, end: 20060329
  3. KIVEXA [Suspect]
     Indication: HIV INFECTION
     Route: 065
     Dates: end: 20060502
  4. KALETRA [Suspect]
     Indication: HIV INFECTION
     Route: 048
     Dates: start: 20050723
  5. BACTRIM [Concomitant]
     Route: 048
  6. WELLVONE [Concomitant]
     Route: 048

REACTIONS (1)
  - NEPHROPATHY TOXIC [None]
